FAERS Safety Report 13640619 (Version 1)
Quarter: 2017Q2

REPORT INFORMATION
  Report Type: Spontaneous
  Country: DE (occurrence: DE)
  Receive Date: 20170611
  Receipt Date: 20170611
  Transmission Date: 20170830
  Serious: Yes (Other)
  Sender: FDA-Public Use
  Company Number: DE-ROCHE-1943882

PATIENT
  Age: 38 Year
  Sex: Male

DRUGS (11)
  1. OXYCODONE [Suspect]
     Active Substance: OXYCODONE
     Route: 048
     Dates: start: 20170216
  2. QUETIAPINE. [Suspect]
     Active Substance: QUETIAPINE
     Indication: PAIN
     Dosage: MEDICATION INTAKE SINCE A LONGER TIME PERIOD (NOT FURTHER SPECIFIED)
     Route: 048
     Dates: end: 20170214
  3. SERTRALINE [Suspect]
     Active Substance: SERTRALINE HYDROCHLORIDE
     Route: 048
     Dates: start: 20170216
  4. DULOXETINA [Suspect]
     Active Substance: DULOXETINE
     Indication: PAIN
     Dosage: MEDICATION INTAKE SINCE A LONGER TIME PERIOD (NOT FURTHER SPECIFIED)
     Route: 048
     Dates: start: 20170216, end: 20170217
  5. SERTRALINE [Suspect]
     Active Substance: SERTRALINE HYDROCHLORIDE
     Indication: PAIN
     Dosage: MEDICATION INTAKE SINCE A LONGER TIME PERIOD (NOT FURTHER SPECIFIED)
     Route: 048
     Dates: end: 20170215
  6. QUETIAPINE. [Suspect]
     Active Substance: QUETIAPINE
     Route: 048
     Dates: start: 20170215
  7. OXYCODONE [Suspect]
     Active Substance: OXYCODONE
     Indication: PAIN
     Dosage: MEDICATION INTAKE SINCE A LONGER TIME PERIOD (NOT FURTHER SPECIFIED)
     Route: 048
     Dates: end: 20170215
  8. PANTOPRAZOL [Concomitant]
     Active Substance: PANTOPRAZOLE SODIUM
     Route: 048
  9. PREGABALIN. [Suspect]
     Active Substance: PREGABALIN
     Indication: PAIN
     Dosage: MEDICATION INTAKE SINCE A LONGER TIME PERIOD (NOT FURTHER SPECIFIED)
     Route: 048
  10. AGOMELATINE [Concomitant]
     Active Substance: AGOMELATINE
  11. DIAZEPAM. [Suspect]
     Active Substance: DIAZEPAM
     Indication: PAIN
     Dosage: MEDICATION INTAKE SINCE A LONGER TIME PERIOD (NOT FURTHER SPECIFIED)
     Route: 048

REACTIONS (1)
  - Urinary hesitation [Recovered/Resolved]

NARRATIVE: CASE EVENT DATE: 20170216
